FAERS Safety Report 11879318 (Version 1)
Quarter: 2015Q4

REPORT INFORMATION
  Report Type: Spontaneous
  Country: JP (occurrence: JP)
  Receive Date: 20151230
  Receipt Date: 20151230
  Transmission Date: 20160305
  Serious: Yes (Other)
  Sender: FDA-Public Use
  Company Number: JP-BRISTOL-MYERS SQUIBB COMPANY-BMS-2015-092172

PATIENT
  Age: 73 Year
  Sex: Female

DRUGS (1)
  1. ELIQUIS [Suspect]
     Active Substance: APIXABAN
     Indication: THROMBOSIS PROPHYLAXIS
     Dosage: 5 MG, BID
     Route: 048
     Dates: end: 20151220

REACTIONS (4)
  - Gastric cancer [Unknown]
  - Gastric haemorrhage [Unknown]
  - Haemoglobin decreased [Unknown]
  - Transfusion [Recovered/Resolved]

NARRATIVE: CASE EVENT DATE: 20151221
